FAERS Safety Report 19057227 (Version 1)
Quarter: 2021Q1

REPORT INFORMATION
  Report Type: Spontaneous
  Country: SE (occurrence: SE)
  Receive Date: 20210324
  Receipt Date: 20210324
  Transmission Date: 20210420
  Serious: Yes (Hospitalization, Other)
  Sender: FDA-Public Use
  Company Number: SE-PFIZER INC-2021272276

PATIENT
  Age: 46 Year
  Sex: Male

DRUGS (12)
  1. RIFAMPICIN [Suspect]
     Active Substance: RIFAMPIN
     Indication: TUBERCULOSIS
     Dosage: 900 MG, 1X/DAY
     Route: 042
  2. EPIVIR [Suspect]
     Active Substance: LAMIVUDINE
     Indication: HIV INFECTION
     Dosage: 150 MG, 2X/DAY
     Route: 042
  3. TRIUMEQ [Suspect]
     Active Substance: ABACAVIR SULFATE\DOLUTEGRAVIR SODIUM\LAMIVUDINE
     Dosage: 1 DF (TABLET), QD
     Route: 042
     Dates: start: 20210115
  4. BETAPRED [Suspect]
     Active Substance: BETAMETHASONE SODIUM PHOSPHATE
     Dosage: 6 MG, 2X/DAY
     Route: 042
  5. LEVOFLOXACIN. [Suspect]
     Active Substance: LEVOFLOXACIN
     Dosage: 1000 MG, 1X/DAY
     Route: 042
  6. TIVICAY [Suspect]
     Active Substance: DOLUTEGRAVIR SODIUM
     Dosage: 50 MG, 1X/DAY (EVENING)
     Route: 042
     Dates: start: 20210112
  7. TRIUMEQ [Suspect]
     Active Substance: ABACAVIR SULFATE\DOLUTEGRAVIR SODIUM\LAMIVUDINE
     Indication: HIV INFECTION
     Dosage: 1 DF, DAILY
     Route: 042
     Dates: start: 2016
  8. ISONIAZID. [Suspect]
     Active Substance: ISONIAZID
     Dosage: 300 MG, 1X/DAY
     Route: 042
  9. SOLU?MEDROL [Suspect]
     Active Substance: METHYLPREDNISOLONE SODIUM SUCCINATE
     Dosage: 1 G 2 DOSES
  10. PYRAZINAMIDE. [Suspect]
     Active Substance: PYRAZINAMIDE
     Dosage: 500 MG, 4X/DAY
     Route: 042
  11. TIVICAY [Suspect]
     Active Substance: DOLUTEGRAVIR SODIUM
     Indication: HIV INFECTION
     Dosage: 50 MG, 2X/DAY
     Route: 042
     Dates: start: 20210112
  12. ZIAGEN [Suspect]
     Active Substance: ABACAVIR SULFATE
     Indication: HIV INFECTION
     Dosage: 300 MG, 2X/DAY

REACTIONS (13)
  - Loss of consciousness [Unknown]
  - Paraesthesia [Unknown]
  - Headache [Unknown]
  - Renal impairment [Recovered/Resolved]
  - Condition aggravated [Unknown]
  - Tuberculosis of central nervous system [Unknown]
  - Central nervous system inflammation [Unknown]
  - Limb discomfort [Unknown]
  - Nervous system disorder [Unknown]
  - Seizure [Unknown]
  - Dysstasia [Unknown]
  - Asthenia [Not Recovered/Not Resolved]
  - Fatigue [Unknown]

NARRATIVE: CASE EVENT DATE: 2019
